FAERS Safety Report 9849280 (Version 1)
Quarter: 2014Q1

REPORT INFORMATION
  Report Type: Spontaneous
  Country: US (occurrence: US)
  Receive Date: 20140128
  Receipt Date: 20140128
  Transmission Date: 20141002
  Serious: No
  Sender: FDA-Public Use
  Company Number: US-ABBVIE-13P-163-1143225-00

PATIENT
  Age: 49 Year
  Sex: Female
  Weight: 72.19 kg

DRUGS (2)
  1. LUPRON DEPOT [Suspect]
     Indication: ENDOMETRIOSIS
     Dosage: TOOK ONE DOSE, STRENGTH NOT AVAILABLE
     Dates: start: 201306, end: 201306
  2. IBUPROFEN [Concomitant]
     Indication: PRODUCT USED FOR UNKNOWN INDICATION

REACTIONS (3)
  - Menstrual disorder [Recovered/Resolved]
  - Menstrual disorder [Recovered/Resolved]
  - Drug ineffective [Unknown]
